FAERS Safety Report 25948969 (Version 2)
Quarter: 2025Q4

REPORT INFORMATION
  Report Type: Spontaneous
  Country: CN (occurrence: CN)
  Receive Date: 20251022
  Receipt Date: 20251028
  Transmission Date: 20260117
  Serious: Yes (Other)
  Sender: PFIZER
  Company Number: CN-MLMSERVICE-20251008-PI667857-00060-2

PATIENT
  Age: 34 Year
  Sex: Female

DRUGS (4)
  1. AZITHROMYCIN [Suspect]
     Active Substance: AZITHROMYCIN
     Indication: Atypical mycobacterial infection
     Dosage: 250 MG, 1X/DAY
     Route: 048
     Dates: start: 202106, end: 202106
  2. AZITHROMYCIN [Suspect]
     Active Substance: AZITHROMYCIN
     Indication: Keratitis bacterial
  3. AMIKACIN [Concomitant]
     Active Substance: AMIKACIN
     Indication: Atypical mycobacterial infection
     Dosage: 2%
     Route: 061
     Dates: start: 202106, end: 202106
  4. AMIKACIN [Concomitant]
     Active Substance: AMIKACIN
     Indication: Keratitis bacterial
     Dosage: 4%
     Route: 061
     Dates: start: 202106, end: 202106

REACTIONS (2)
  - Abdominal discomfort [Recovered/Resolved]
  - Off label use [Unknown]

NARRATIVE: CASE EVENT DATE: 20210601
